FAERS Safety Report 21206918 (Version 1)
Quarter: 2022Q3

REPORT INFORMATION
  Report Type: Other
  Country: US (occurrence: None)
  Receive Date: 20220812
  Receipt Date: 20220812
  Transmission Date: 20221027
  Serious: Yes (Death, Hospitalization)
  Sender: FDA-Public Use
  Company Number: US-ROCHE-3141392

PATIENT
  Sex: Male
  Weight: 74.910 kg

DRUGS (2)
  1. ESBRIET [Suspect]
     Active Substance: PIRFENIDONE
     Indication: Idiopathic pulmonary fibrosis
     Dosage: 3 TABLETS BY MOUTH 3 TIMES A DAY WITH MEALS, DAY 1 THROUGH 7: 1 TABLET BY MOUTH THREE TIMES A DAY WI
     Route: 048
  2. ESBRIET [Suspect]
     Active Substance: PIRFENIDONE
     Indication: Rheumatoid arthritis

REACTIONS (2)
  - Interstitial lung disease [Fatal]
  - Dyspnoea [Unknown]
